FAERS Safety Report 5357124-4 (Version None)
Quarter: 2007Q2

REPORT INFORMATION
  Report Type: 
  Country: None (occurrence: None)
  Receive Date: 20070612
  Receipt Date: 20070601
  Transmission Date: 20071010
  Serious: Yes (Death, Hospitalization)
  Sender: FDA-Public Use
  Company Number: MSTR-NO-0704S-0001

PATIENT
  Age: 72 Year
  Sex: Male

DRUGS (7)
  1. METASTRON [Suspect]
     Indication: METASTASIS
     Dosage: , SINGLE DOSE, I.V.
     Route: 042
     Dates: start: 20060201, end: 20060201
  2. PREDNISONE TAB [Concomitant]
  3. PARACETAMOL/DEXTROPROPOXYPHEN [Concomitant]
  4. ESTRAMUSTINE [Concomitant]
  5. CLODRONIC ACID [Concomitant]
  6. ZOLEDRONIC ACID [Concomitant]
  7. PAROXETINE HCL [Concomitant]

REACTIONS (2)
  - ACUTE MYELOID LEUKAEMIA [None]
  - PANCYTOPENIA [None]
